FAERS Safety Report 12654724 (Version 2)
Quarter: 2017Q3

REPORT INFORMATION
  Report Type: Spontaneous
  Country: JP (occurrence: JP)
  Receive Date: 20160816
  Receipt Date: 20170814
  Transmission Date: 20171127
  Serious: Yes (Hospitalization)
  Sender: FDA-Public Use
  Company Number: JP-JNJFOC-20160811296

PATIENT
  Age: 68 Year
  Sex: Female
  Weight: 74 kg

DRUGS (14)
  1. SODIUM PICOSULFATE [Concomitant]
     Active Substance: SODIUM PICOSULFATE
     Dosage: 18 DROPS AS REQUIRED
     Route: 048
     Dates: start: 20150415
  2. GLIMEPIRIDE. [Concomitant]
     Active Substance: GLIMEPIRIDE
     Indication: TYPE 2 DIABETES MELLITUS
     Dosage: STARTED BEFORE STARTING CANAGLU
     Route: 048
  3. AMLODIPINE [Concomitant]
     Active Substance: AMLODIPINE BESYLATE
     Dosage: STARTED BEFORE STARTING CANAGLU
     Route: 048
  4. NE-SOFT [Concomitant]
     Dosage: STARTED BEFORE STARTING CANAGLU
     Route: 048
  5. CRESTOR [Concomitant]
     Active Substance: ROSUVASTATIN CALCIUM
     Dosage: STARTED BEFORE STARTING CANAGLU
     Route: 048
  6. TRAZENTA [Concomitant]
     Active Substance: LINAGLIPTIN
     Indication: TYPE 2 DIABETES MELLITUS
     Route: 048
     Dates: start: 20140827
  7. KARY UNI [Concomitant]
     Active Substance: PIRENOXINE
     Route: 031
     Dates: start: 20160310, end: 20160629
  8. CRAVIT [Concomitant]
     Active Substance: LEVOFLOXACIN
     Indication: PROPHYLAXIS
     Route: 031
     Dates: start: 20160630, end: 20160804
  9. CANAGLU [Suspect]
     Active Substance: CANAGLIFLOZIN
     Indication: TYPE 2 DIABETES MELLITUS
     Route: 048
     Dates: start: 20160203
  10. LANSOPRAZOLE. [Concomitant]
     Active Substance: LANSOPRAZOLE
     Indication: PROPHYLAXIS
     Dosage: STARTED BEFORE STARTING CANAGLU
     Route: 048
  11. MAGNESIUM OXIDE. [Concomitant]
     Active Substance: MAGNESIUM OXIDE
     Route: 048
     Dates: start: 20140709
  12. BUFFERIN [Concomitant]
     Active Substance: ASPIRIN
     Dosage: STARTED BEFORE STARTING CANAGLU
     Route: 048
  13. SENNARIDE [Concomitant]
     Active Substance: SENNOSIDES A AND B
     Route: 048
     Dates: start: 20140820
  14. ZETIA [Concomitant]
     Active Substance: EZETIMIBE
     Dosage: STARTED BEFORE STARTING CANAGLU
     Route: 048

REACTIONS (3)
  - Cataract [Recovered/Resolved]
  - Cataract [Recovered/Resolved]
  - Flank pain [Recovered/Resolved]
